FAERS Safety Report 12635605 (Version 1)
Quarter: 2016Q3

REPORT INFORMATION
  Report Type: Spontaneous
  Country: US (occurrence: US)
  Receive Date: 20160809
  Receipt Date: 20160809
  Transmission Date: 20161109
  Serious: No
  Sender: FDA-Public Use
  Company Number: US-TARO-2015TAR00984

PATIENT
  Age: 61 Year
  Sex: Male
  Weight: 81.63 kg

DRUGS (1)
  1. TERBINAFINE HCL CREAM 1% (JOCK ITCH) [Suspect]
     Active Substance: TERBINAFINE HYDROCHLORIDE
     Indication: SKIN IRRITATION
     Dosage: UNK UNK, ONCE
     Route: 061
     Dates: start: 20151009, end: 20151009

REACTIONS (4)
  - Skin disorder [Not Recovered/Not Resolved]
  - Pain [Recovered/Resolved]
  - Application site rash [Recovered/Resolved]
  - Off label use [Recovered/Resolved]

NARRATIVE: CASE EVENT DATE: 201510
